FAERS Safety Report 6120873-4 (Version None)
Quarter: 2009Q1

REPORT INFORMATION
  Report Type: 
  Country: None (occurrence: None)
  Receive Date: 20090317
  Receipt Date: 20090309
  Transmission Date: 20090719
  Serious: Yes (Hospitalization, Other)
  Sender: FDA-Public Use
  Company Number: CA-ELI_LILLY_AND_COMPANY-CA200903002419

PATIENT
  Age: 74 Year
  Sex: Female

DRUGS (8)
  1. FORTEO [Suspect]
     Indication: OSTEOPOROSIS
     Dosage: 20 UG, DAILY (1/D)
     Route: 058
     Dates: start: 20071204, end: 20090205
  2. LOPRESSOR [Concomitant]
     Dosage: 25 MG, 2/D
  3. DYAZIDE [Concomitant]
  4. FOLIC ACID [Concomitant]
     Dosage: 5 MG, DAILY (1/D)
  5. LOSEC [Concomitant]
     Dosage: 20 MG, DAILY (1/D)
  6. CALCIUM [Concomitant]
  7. VITAMIN D [Concomitant]
     Dosage: 10000 U, WEEKLY (1/W)
  8. ATIVAN [Concomitant]
     Dosage: UNK, AS NEEDED

REACTIONS (2)
  - HAEMOLYTIC ANAEMIA [None]
  - HEART RATE INCREASED [None]
